FAERS Safety Report 6375931-6 (Version None)
Quarter: 2009Q3

REPORT INFORMATION
  Report Type: 
  Country: None (occurrence: None)
  Receive Date: 20090917
  Receipt Date: 20090904
  Transmission Date: 20100115
  Serious: Yes (Life-Threatening)
  Sender: FDA-Public Use
  Company Number: ADR17162009

PATIENT
  Age: 88 Year
  Sex: Female

DRUGS (13)
  1. CITALOPRAM [Suspect]
  2. ASPIRIN [Concomitant]
  3. HEPARIN [Concomitant]
  4. CALCICHEW [Concomitant]
  5. FERROUS SULFATE TAB [Concomitant]
  6. FUROSEMIDE [Concomitant]
  7. METOLAZONE [Concomitant]
  8. NULYTELY [Concomitant]
  9. NEORECORMON [Concomitant]
  10. PROCHLORPERAZINE [Concomitant]
  11. SPIRONOLACTONE [Concomitant]
  12. ZOPICLONE [Concomitant]
  13. ISOTARD XL [Concomitant]

REACTIONS (2)
  - GASTROINTESTINAL HAEMORRHAGE [None]
  - OESOPHAGITIS [None]
